FAERS Safety Report 6866457-1 (Version None)
Quarter: 2010Q3

REPORT INFORMATION
  Report Type: 
  Country: None (occurrence: None)
  Receive Date: 20100722
  Receipt Date: 20100712
  Transmission Date: 20110219
  Serious: Yes (Hospitalization, Other)
  Sender: FDA-Public Use
  Company Number: AU-NOVOPROD-281993

PATIENT
  Sex: Female
  Weight: 63.5 kg

DRUGS (13)
  1. NOVORAPID [Suspect]
     Indication: INSULIN-REQUIRING TYPE 2 DIABETES MELLITUS
     Dosage: 6 U, TID
     Route: 058
     Dates: start: 20081128, end: 20081202
  2. ACTRAPID HM PENFILL [Suspect]
     Indication: INSULIN-REQUIRING TYPE 2 DIABETES MELLITUS
     Dosage: 6+4+6  U, QD
     Dates: start: 20010101
  3. ACTRAPID HM PENFILL [Suspect]
     Dosage: 10 U, BID
     Dates: start: 20010101, end: 20080901
  4. ACTRAPID HM PENFILL [Suspect]
     Dosage: 10-12 U, BID-TID
     Dates: start: 20081202
  5. PROTAPHANE PENFILL [Suspect]
     Indication: INSULIN-REQUIRING TYPE 2 DIABETES MELLITUS
     Dosage: 4 U AT NIGHT, QD FOR ONE WEEK.
     Dates: start: 20010101
  6. PROTAPHANE PENFILL [Suspect]
     Dosage: 10 U TWICE DAILY WHEN BLS ARE HIGH
     Dates: start: 20010101, end: 20080901
  7. PROTAPHANE PENFILL [Suspect]
     Dosage: 10 U, SINGLE
     Dates: start: 20081202
  8. LANTUS [Suspect]
     Indication: INSULIN-REQUIRING TYPE 2 DIABETES MELLITUS
     Dosage: 18 U, QD AT NIGHT
     Dates: start: 20081106
  9. LANTUS [Suspect]
     Dosage: 30 U, QD AT NIGHT
     Dates: end: 20081121
  10. PREDNISOLONE [Concomitant]
     Indication: ASTHMA
  11. ATROVENT [Concomitant]
  12. ASMOL                              /00139501/ [Concomitant]
  13. METFORMIN [Concomitant]
     Dosage: 500 MG, BID

REACTIONS (5)
  - BLOOD GLUCOSE INCREASED [None]
  - LOWER RESPIRATORY TRACT INFECTION [None]
  - LUNG INFECTION [None]
  - PSEUDOMONAS INFECTION [None]
  - THROAT CANCER [None]
